FAERS Safety Report 5693990-0 (Version None)
Quarter: 2008Q2

REPORT INFORMATION
  Report Type: 
  Country: None (occurrence: None)
  Receive Date: 20080403
  Receipt Date: 20080320
  Transmission Date: 20081010
  Serious: Yes (Other)
  Sender: FDA-Public Use
  Company Number: CA-PFIZER INC-2008027641

PATIENT
  Sex: Female

DRUGS (6)
  1. NICOTINE [Suspect]
     Indication: SMOKING CESSATION THERAPY
     Route: 055
  2. EPIVAL [Concomitant]
     Dosage: DAILY DOSE:1000MG
     Route: 048
  3. EFFEXOR [Concomitant]
     Dosage: DAILY DOSE:75MG
     Route: 048
  4. CIPRALEX [Concomitant]
     Dosage: DAILY DOSE:10MG
     Route: 048
  5. CLONAZEPAM [Concomitant]
     Dosage: DAILY DOSE:.75MG
     Route: 048
  6. SEROQUEL [Concomitant]
     Dosage: DAILY DOSE:200MG
     Route: 048

REACTIONS (3)
  - ANXIETY [None]
  - DEPENDENCE [None]
  - DIZZINESS [None]
